FAERS Safety Report 13347229 (Version 1)
Quarter: 2017Q1

REPORT INFORMATION
  Report Type: Spontaneous
  Country: DK (occurrence: DK)
  Receive Date: 20170317
  Receipt Date: 20170317
  Transmission Date: 20170428
  Serious: Yes (Other)
  Sender: FDA-Public Use
  Company Number: DK-FRESENIUS KABI-FK201702045

PATIENT
  Age: 62 Year
  Sex: Female

DRUGS (1)
  1. METHOTREXATE (MANUFACTURER UNKNOWN) [Suspect]
     Active Substance: METHOTREXATE
     Indication: RHEUMATOID ARTHRITIS
     Route: 065

REACTIONS (7)
  - Weight decreased [Unknown]
  - Fatigue [Unknown]
  - Purpura [Recovered/Resolved]
  - Neck pain [Unknown]
  - Ecchymosis [Recovered/Resolved]
  - Contusion [Recovered/Resolved]
  - Wound [Unknown]
